FAERS Safety Report 14968052 (Version 2)
Quarter: 2018Q2

REPORT INFORMATION
  Report Type: Spontaneous
  Country: US (occurrence: US)
  Receive Date: 20180604
  Receipt Date: 20180605
  Transmission Date: 20180711
  Serious: No
  Sender: FDA-Public Use
  Company Number: US-PFIZER INC-2018225010

PATIENT
  Age: 63 Year
  Sex: Female
  Weight: 48.53 kg

DRUGS (3)
  1. OTEZLA [Suspect]
     Active Substance: APREMILAST
     Indication: PSORIASIS
     Dosage: 2 DF, 1X/DAY(30MG TWO TABLET ONCE A DAY)
     Route: 048
  2. LINZESS [Concomitant]
     Active Substance: LINACLOTIDE
     Indication: CROHN^S DISEASE
     Dosage: 145 MG, 1X/DAY(145MG CAPSULE IN MORNING BEFORE MEALS)
     Route: 048
  3. XELJANZ [Suspect]
     Active Substance: TOFACITINIB CITRATE
     Indication: ARTHRITIS
     Dosage: 10 MG, ONCE DAILY (TWO 5MG PILLS ONCE A DAY)
     Route: 048

REACTIONS (3)
  - Drug ineffective for unapproved indication [Unknown]
  - Pain [Unknown]
  - Feeling abnormal [Not Recovered/Not Resolved]
